FAERS Safety Report 4577939-X (Version None)
Quarter: 2005Q1

REPORT INFORMATION
  Report Type: 
  Country: None (occurrence: None)
  Receive Date: 20050209
  Receipt Date: 20050127
  Transmission Date: 20050727
  Serious: Yes (Other)
  Sender: FDA-Public Use
  Company Number: 2005EU000164

PATIENT
  Sex: Male

DRUGS (2)
  1. PROGRAF [Suspect]
     Indication: BONE MARROW TRANSPLANT
  2. VIROCONAZOLE (VORICONAZOLE) [Suspect]
     Indication: BONE MARROW TRANSPLANT

REACTIONS (6)
  - ABDOMINAL PAIN [None]
  - CONFUSIONAL STATE [None]
  - DRUG INTERACTION [None]
  - DRUG LEVEL INCREASED [None]
  - PSYCHOTIC DISORDER [None]
  - URINARY RETENTION [None]
